FAERS Safety Report 4843936-X (Version None)
Quarter: 2005Q4

REPORT INFORMATION
  Report Type: 
  Country: None (occurrence: None)
  Receive Date: 20051202
  Receipt Date: 20050707
  Transmission Date: 20060501
  Serious: No
  Sender: FDA-Public Use
  Company Number: 2005072779

PATIENT
  Age: 52 Year
  Sex: Male

DRUGS (1)
  1. AUGMENTIN [Suspect]
     Route: 065
     Dates: start: 20050509

REACTIONS (2)
  - DRUG INEFFECTIVE [None]
  - RASH PRURITIC [None]
